FAERS Safety Report 17600405 (Version 1)
Quarter: 2020Q1

REPORT INFORMATION
  Report Type: Spontaneous
  Country: FR (occurrence: FR)
  Receive Date: 20200330
  Receipt Date: 20200330
  Transmission Date: 20200409
  Serious: Yes (Hospitalization)
  Sender: FDA-Public Use
  Company Number: FR-PFIZER INC-2020127347

PATIENT
  Age: 60 Year
  Sex: Male
  Weight: 83 kg

DRUGS (3)
  1. RAPAMUNE [Suspect]
     Active Substance: SIROLIMUS
     Indication: FASCIITIS
     Dosage: 4 MG, 1X/DAY
     Route: 048
     Dates: start: 20191226
  2. PREDNISONE. [Suspect]
     Active Substance: PREDNISONE
     Indication: FASCIITIS
     Dosage: 10 MG, 1X/DAY
     Route: 048
     Dates: start: 20181224
  3. AMIODARONE [Interacting]
     Active Substance: AMIODARONE
     Indication: ATRIAL FIBRILLATION
     Dosage: 200 MG, 1X/DAY
     Route: 048
     Dates: start: 20200115

REACTIONS (5)
  - Hypertension [Recovering/Resolving]
  - Diabetes mellitus [Recovering/Resolving]
  - Drug interaction [Recovering/Resolving]
  - Off label use [Unknown]
  - Product use in unapproved indication [Unknown]

NARRATIVE: CASE EVENT DATE: 20200115
